FAERS Safety Report 8357661-4 (Version None)
Quarter: 2012Q2

REPORT INFORMATION
  Report Type: 
  Country: None (occurrence: None)
  Receive Date: 20120514
  Receipt Date: 20120509
  Transmission Date: 20120825
  Serious: Yes (Death)
  Sender: FDA-Public Use
  Company Number: FR-PFIZER INC-2010017802

PATIENT
  Age: 81 Year
  Sex: Male

DRUGS (6)
  1. ASPIRIN [Suspect]
     Dosage: 160 MG, 1X/DAY
     Route: 048
     Dates: start: 20080501, end: 20091207
  2. PERINDOPRIL ERBUMINE [Suspect]
     Dosage: 4 MG, 1X/DAY
     Route: 048
     Dates: start: 20080501, end: 20091207
  3. ATARAX [Suspect]
     Dosage: 12.5 MG, 2X/DAY
     Route: 048
     Dates: start: 20080501, end: 20091207
  4. RISPERDAL [Suspect]
     Dosage: 1 MG, 2X/DAY
     Route: 048
     Dates: start: 20080501, end: 20091207
  5. EFFEXOR XR [Suspect]
     Dosage: 75 MG, 1X/DAY
     Route: 048
     Dates: start: 20080501, end: 20091207
  6. TRIHEXYPHENIDYL HYDROCHLORIDE [Suspect]
     Dosage: 2 MG, 1X/DAY
     Route: 048
     Dates: start: 20080501, end: 20091207

REACTIONS (1)
  - SUDDEN DEATH [None]
